FAERS Safety Report 6228096-5 (Version None)
Quarter: 2009Q2

REPORT INFORMATION
  Report Type: 
  Country: None (occurrence: None)
  Receive Date: 20090610
  Receipt Date: 20090610
  Transmission Date: 20091009
  Serious: No
  Sender: FDA-Public Use
  Company Number: None

PATIENT
  Sex: Male
  Weight: 88.4514 kg

DRUGS (1)
  1. LEVAQUIN [Suspect]
     Indication: PROSTATITIS
     Dosage: 500 MG ONE PER DAY/TEN DA PO
     Route: 048
     Dates: start: 20090302, end: 20090311

REACTIONS (13)
  - BACK PAIN [None]
  - BEDRIDDEN [None]
  - CONDITION AGGRAVATED [None]
  - FATIGUE [None]
  - LETHARGY [None]
  - MUSCLE RUPTURE [None]
  - MUSCLE STRAIN [None]
  - MUSCULOSKELETAL STIFFNESS [None]
  - NASOPHARYNGITIS [None]
  - NEUROPATHY PERIPHERAL [None]
  - PHOTOSENSITIVITY REACTION [None]
  - SINUS CONGESTION [None]
  - TENDONITIS [None]
